FAERS Safety Report 20154003 (Version 7)
Quarter: 2022Q2

REPORT INFORMATION
  Report Type: Report from Study
  Country: US (occurrence: US)
  Receive Date: 20211207
  Receipt Date: 20220412
  Transmission Date: 20220720
  Serious: Yes (Other)
  Sender: FDA-Public Use
  Company Number: US-NOVARTISTESTPH-NVSC2021US279024

PATIENT
  Age: 75 Year
  Sex: Female

DRUGS (6)
  1. KISQALI [Suspect]
     Active Substance: RIBOCICLIB
     Indication: Breast cancer
     Dosage: UNK
     Route: 065
     Dates: start: 20211116
  2. KISQALI [Suspect]
     Active Substance: RIBOCICLIB
     Route: 048
  3. KISQALI [Suspect]
     Active Substance: RIBOCICLIB
     Route: 048
  4. KISQALI [Suspect]
     Active Substance: RIBOCICLIB
     Route: 048
  5. KISQALI [Suspect]
     Active Substance: RIBOCICLIB
     Dosage: 400 MG, QD
     Route: 048
  6. KISQALI [Suspect]
     Active Substance: RIBOCICLIB
     Dosage: 400 MG, QD
     Route: 048

REACTIONS (9)
  - Neutropenia [Recovered/Resolved]
  - White blood cell count decreased [Unknown]
  - Renal impairment [Recovered/Resolved]
  - Anaemia [Unknown]
  - Balance disorder [Recovered/Resolved]
  - Nausea [Recovering/Resolving]
  - Urinary tract infection [Not Recovered/Not Resolved]
  - Skin infection [Not Recovered/Not Resolved]
  - Pruritus [Recovered/Resolved]

NARRATIVE: CASE EVENT DATE: 20211213
